FAERS Safety Report 5573035-3 (Version None)
Quarter: 2007Q4

REPORT INFORMATION
  Report Type: 
  Country: None (occurrence: None)
  Receive Date: 20071224
  Receipt Date: 20071214
  Transmission Date: 20080405
  Serious: Yes (Hospitalization)
  Sender: FDA-Public Use
  Company Number: JP-JNJFOC-20071101329

PATIENT
  Sex: Male

DRUGS (4)
  1. ITRIZOLE [Suspect]
     Indication: DRUG USE FOR UNKNOWN INDICATION
     Route: 048
  2. LENDORMIN [Concomitant]
     Indication: INSOMNIA
     Route: 048
  3. KAMI-SHOYO-SAN [Concomitant]
     Indication: FEELING COLD
     Route: 048
  4. KAMI-SHOYO-SAN [Concomitant]
     Indication: GLOSSODYNIA
     Route: 048

REACTIONS (2)
  - DRUG ERUPTION [None]
  - OFF LABEL USE [None]
